FAERS Safety Report 6620288-6 (Version None)
Quarter: 2010Q1

REPORT INFORMATION
  Report Type: 
  Country: None (occurrence: None)
  Receive Date: 20100304
  Receipt Date: 20100223
  Transmission Date: 20100710
  Serious: Yes (Death, Other)
  Sender: FDA-Public Use
  Company Number: 2010US000627

PATIENT
  Age: 74 Year
  Sex: Male

DRUGS (5)
  1. VIBATIV [Suspect]
     Indication: STAPHYLOCOCCAL ABSCESS
     Dosage: 10 MG, QOD, IV NOS
     Route: 042
     Dates: start: 20100203, end: 20100219
  2. VANCOMYCIN [Concomitant]
  3. RIFAMPIN (RIFAMPICIN) [Concomitant]
  4. DAPTOMYCIN (DAPTOMYCIN) [Concomitant]
  5. SYNERCID (QUINUPRISTIN) [Concomitant]

REACTIONS (1)
  - DIARRHOEA [None]
